FAERS Safety Report 8545874-8 (Version None)
Quarter: 2012Q3

REPORT INFORMATION
  Report Type: 
  Country: None (occurrence: None)
  Receive Date: 20120727
  Receipt Date: 20111121
  Transmission Date: 20120928
  Serious: No
  Sender: FDA-Public Use
  Company Number: US-ASTRAZENECA-2011SE69783

PATIENT
  Age: 68 Year
  Sex: Male

DRUGS (7)
  1. SEROQUEL [Suspect]
     Indication: INSOMNIA
     Route: 048
  2. CLONAZEPAM [Concomitant]
  3. SEROQUEL [Suspect]
     Indication: DEPRESSION
     Route: 048
  4. POTASSIUM CHLORIDE [Concomitant]
  5. PAIN MEDICATIONS [Concomitant]
  6. SEROQUEL [Suspect]
     Indication: BIPOLAR DISORDER
     Route: 048
  7. BLOOD PRESSURE PILLS [Concomitant]

REACTIONS (4)
  - OFF LABEL USE [None]
  - INSOMNIA [None]
  - NASOPHARYNGITIS [None]
  - DRUG DOSE OMISSION [None]
